FAERS Safety Report 6547942-9 (Version None)
Quarter: 2010Q1

REPORT INFORMATION
  Report Type: 
  Country: None (occurrence: None)
  Receive Date: 20100124
  Receipt Date: 20091125
  Transmission Date: 20100710
  Serious: No
  Sender: FDA-Public Use
  Company Number: US-ALEXION-A200900911

PATIENT
  Sex: Female

DRUGS (2)
  1. SOLIRIS [Suspect]
     Indication: PAROXYSMAL NOCTURNAL HAEMOGLOBINURIA
     Dosage: 600 MG, QW X4
     Route: 042
     Dates: start: 20090916, end: 20091007
  2. SOLIRIS [Suspect]
     Dosage: 900 MG, Q 2W
     Route: 042
     Dates: start: 20091014

REACTIONS (9)
  - BLOOD URINE PRESENT [None]
  - COUGH [None]
  - DYSPHAGIA [None]
  - HAEMOGLOBIN DECREASED [None]
  - INFLUENZA LIKE ILLNESS [None]
  - MYALGIA [None]
  - PYREXIA [None]
  - RETICULOCYTE COUNT INCREASED [None]
  - SINUS CONGESTION [None]
